FAERS Safety Report 24421641 (Version 1)
Quarter: 2024Q4

REPORT INFORMATION
  Report Type: Report from Study
  Country: US (occurrence: US)
  Receive Date: 20241010
  Receipt Date: 20241010
  Transmission Date: 20250115
  Serious: Yes (Hospitalization, Other)
  Sender: GILEAD
  Company Number: US-GILEAD-2024-0690194

PATIENT
  Sex: Female

DRUGS (28)
  1. AZTREONAM LYSINE [Suspect]
     Active Substance: AZTREONAM LYSINE
     Indication: Cystic fibrosis
     Dosage: 75 MG, TID (75MG INHALED VIA NEBULIZER THREE TIMES DAILY FOR 28 DAYS)
     Route: 055
     Dates: start: 20150421
  2. AZITHROMYCIN [Concomitant]
     Active Substance: AZITHROMYCIN
  3. CLARITHROMYCIN [Concomitant]
     Active Substance: CLARITHROMYCIN
  4. FAMOTIDINE [Concomitant]
     Active Substance: FAMOTIDINE
  5. MELATONIN [Concomitant]
     Active Substance: MELATONIN
  6. PANTOPRAZOLE [Concomitant]
     Active Substance: PANTOPRAZOLE
  7. SERTRALINE [Concomitant]
     Active Substance: SERTRALINE HYDROCHLORIDE
  8. BENTYL [Concomitant]
     Active Substance: DICYCLOMINE HYDROCHLORIDE
  9. BENZONATATE [Concomitant]
     Active Substance: BENZONATATE
  10. CALCIUM [Concomitant]
     Active Substance: CALCIUM
  11. CARAFATE [Concomitant]
     Active Substance: SUCRALFATE
  12. CRESEMBA [Concomitant]
     Active Substance: ISAVUCONAZONIUM SULFATE
  13. CYCLOBENZAPRINE [Concomitant]
     Active Substance: CYCLOBENZAPRINE
  14. ELIQUIS [Concomitant]
     Active Substance: APIXABAN
  15. FLONASE [Concomitant]
     Active Substance: FLUTICASONE PROPIONATE
  16. LEVAQUIN [Concomitant]
     Active Substance: LEVOFLOXACIN
  17. LORATADINE [Concomitant]
     Active Substance: LORATADINE
  18. METAXALONE [Concomitant]
     Active Substance: METAXALONE
  19. MUCINEX [Concomitant]
     Active Substance: GUAIFENESIN
  20. OXYCODONE [Concomitant]
     Active Substance: OXYCODONE
  21. PANCREAZE [Concomitant]
     Active Substance: PANCRELIPASE AMYLASE\PANCRELIPASE LIPASE\PANCRELIPASE PROTEASE
  22. PREDNISONE [Concomitant]
     Active Substance: PREDNISONE
  23. ACETAMINOPHEN\OXYCODONE HYDROCHLORIDE\OXYCODONE TEREPHTHALATE [Concomitant]
     Active Substance: ACETAMINOPHEN\OXYCODONE HYDROCHLORIDE\OXYCODONE TEREPHTHALATE
  24. PULMOZYME [Concomitant]
     Active Substance: DORNASE ALFA
  25. SEROQUEL [Concomitant]
     Active Substance: QUETIAPINE FUMARATE
  26. TOPAMAX [Concomitant]
     Active Substance: TOPIRAMATE
  27. TRAMADOL [Concomitant]
     Active Substance: TRAMADOL
  28. SODIUM CHLORIDE [Concomitant]
     Active Substance: SODIUM CHLORIDE

REACTIONS (4)
  - Cystic fibrosis [Not Recovered/Not Resolved]
  - Fatigue [Not Recovered/Not Resolved]
  - Lung disorder [Not Recovered/Not Resolved]
  - Sleep disorder [Unknown]
